FAERS Safety Report 15399632 (Version 1)
Quarter: 2018Q3

REPORT INFORMATION
  Report Type: Spontaneous
  Country: US (occurrence: US)
  Receive Date: 20180918
  Receipt Date: 20180918
  Transmission Date: 20181010
  Serious: Yes (Hospitalization)
  Sender: FDA-Public Use
  Company Number: US-CELGENEUS-USA-20180904481

PATIENT
  Age: 5 Year
  Sex: Female
  Weight: 24 kg

DRUGS (30)
  1. OMEPRAZOLE SODIUM [Concomitant]
     Active Substance: OMEPRAZOLE SODIUM
     Indication: GASTROOESOPHAGEAL REFLUX DISEASE
     Dosage: 20 MILLIGRAM
     Route: 045
     Dates: start: 20171108
  2. ACETAMINOPHEN. [Concomitant]
     Active Substance: ACETAMINOPHEN
     Indication: PYREXIA
     Route: 045
     Dates: start: 20171231, end: 20180101
  3. ALLOPURINOL. [Concomitant]
     Active Substance: ALLOPURINOL
     Dosage: 300 MILLIGRAM
     Route: 045
     Dates: start: 20180112, end: 20180113
  4. OLANZAPINE. [Concomitant]
     Active Substance: OLANZAPINE
     Indication: VOMITING
  5. VENETOCLAX. [Suspect]
     Active Substance: VENETOCLAX
     Dosage: 170 MILLIGRAM
     Route: 045
     Dates: start: 20171115, end: 20171115
  6. ENALAPRIL [Concomitant]
     Active Substance: ENALAPRIL
     Indication: CARDIAC DISORDER
     Dosage: 2 MILLIGRAM
     Route: 045
     Dates: start: 20171106
  7. LORAZEPAM. [Concomitant]
     Active Substance: LORAZEPAM
     Indication: VOMITING
  8. DEXTROSE. [Concomitant]
     Active Substance: DEXTROSE
     Indication: PROPHYLAXIS
     Dosage: 2 MILLILITER
     Route: 041
     Dates: start: 20171113, end: 20171117
  9. DEXTROSE. [Concomitant]
     Active Substance: DEXTROSE
     Dosage: 75 MILLILITER
     Route: 041
     Dates: start: 20171207, end: 20171208
  10. OLANZAPINE. [Concomitant]
     Active Substance: OLANZAPINE
     Indication: NAUSEA
     Dosage: 2.5 MILLIGRAM
     Route: 045
     Dates: start: 20180315
  11. VIDAZA [Suspect]
     Active Substance: AZACITIDINE
     Indication: REFRACTORY CANCER
     Route: 041
     Dates: start: 20170528, end: 20170603
  12. VIDAZA [Suspect]
     Active Substance: AZACITIDINE
     Dosage: 75 MILLIGRAM/SQ. METER
     Route: 041
     Dates: start: 20180112, end: 20180727
  13. LORAZEPAM. [Concomitant]
     Active Substance: LORAZEPAM
     Indication: NAUSEA
     Dosage: 2.4 MILLIGRAM
     Route: 045
     Dates: start: 20171108
  14. GRANISETRON HYDROCHLORIDE. [Concomitant]
     Active Substance: GRANISETRON HYDROCHLORIDE
     Indication: PROPHYLAXIS OF NAUSEA AND VOMITING
     Dosage: 2 MILLIGRAM
     Route: 045
     Dates: start: 20171108
  15. CHOLECALCIFEROL [Concomitant]
     Active Substance: CHOLECALCIFEROL
     Indication: VITAMIN SUPPLEMENTATION
     Dosage: 2000 IU (INTERNATIONAL UNIT)
     Route: 045
     Dates: start: 20171108
  16. DEXTROSE. [Concomitant]
     Active Substance: DEXTROSE
     Dosage: 37 MILLILITER
     Route: 041
     Dates: start: 20180112, end: 20180113
  17. ACYCLOVIR. [Concomitant]
     Active Substance: ACYCLOVIR
     Indication: ANTIVIRAL PROPHYLAXIS
     Dosage: 1000 MILLIGRAM
     Route: 045
     Dates: start: 20171108
  18. ALLOPURINOL. [Concomitant]
     Active Substance: ALLOPURINOL
     Dosage: 300 MILLIGRAM
     Route: 045
     Dates: start: 20180316, end: 20180321
  19. ALLOPURINOL. [Concomitant]
     Active Substance: ALLOPURINOL
     Dosage: 300 MILLIGRAM
     Route: 045
     Dates: start: 20180721
  20. DECITABINE. [Concomitant]
     Active Substance: DECITABINE
     Indication: REFRACTORY CANCER
     Dosage: 20 MILLIGRAM/SQ. METER
     Route: 041
     Dates: start: 20171207, end: 20171213
  21. VENETOCLAX. [Suspect]
     Active Substance: VENETOCLAX
     Dosage: 170 MILLIGRAM
     Route: 045
     Dates: start: 20171207, end: 20180814
  22. LEVOFLOXACIN. [Concomitant]
     Active Substance: LEVOFLOXACIN
     Indication: BACTERIAL INFECTION
     Dosage: 440 MILLIGRAM
     Route: 045
     Dates: start: 20171121
  23. ALLOPURINOL. [Concomitant]
     Active Substance: ALLOPURINOL
     Dosage: 300 MILLIGRAM
     Route: 045
     Dates: start: 20171207, end: 20171208
  24. OXYCODONE [Concomitant]
     Active Substance: OXYCODONE
     Indication: PAIN
     Route: 045
     Dates: start: 20171110
  25. VENETOCLAX. [Suspect]
     Active Substance: VENETOCLAX
     Indication: REFRACTORY CANCER
     Dosage: 80 MILLIGRAM
     Route: 045
     Dates: start: 20171114, end: 20171114
  26. SULFAMETHOXAZOLE [Concomitant]
     Active Substance: SULFAMETHOXAZOLE
     Indication: INFECTION PROPHYLAXIS
     Route: 045
     Dates: start: 20171108
  27. MAGNESIUM CARBONATE [Concomitant]
     Active Substance: MAGNESIUM CARBONATE
     Indication: MINERAL SUPPLEMENTATION
     Dosage: 54 MILLIGRAM
     Route: 045
     Dates: start: 20171108
  28. VENETOCLAX. [Suspect]
     Active Substance: VENETOCLAX
     Dosage: 350 MILLIGRAM
     Route: 045
     Dates: start: 20171116, end: 20171206
  29. ACETAMINOPHEN. [Concomitant]
     Active Substance: ACETAMINOPHEN
     Indication: NEUTROPENIA
     Dosage: 116 MILLILITER
     Route: 045
     Dates: start: 20180721
  30. ALLOPURINOL. [Concomitant]
     Active Substance: ALLOPURINOL
     Indication: PROPHYLAXIS
     Dosage: 300 MILLIGRAM
     Route: 045
     Dates: start: 20171113, end: 20171117

REACTIONS (1)
  - Pyrexia [Not Recovered/Not Resolved]

NARRATIVE: CASE EVENT DATE: 20180904
